FAERS Safety Report 10973652 (Version 1)
Quarter: 2015Q1

REPORT INFORMATION
  Report Type: Spontaneous
  Country: US (occurrence: None)
  Receive Date: 20150331
  Receipt Date: 20150331
  Transmission Date: 20150721
  Serious: Yes (Hospitalization)
  Sender: FDA-Public Use
  Company Number: None

PATIENT
  Age: 65 Year
  Sex: Male
  Weight: 120.5 kg

DRUGS (2)
  1. OSELTAMIVIR [Suspect]
     Active Substance: OSELTAMIVIR
     Indication: INFLUENZA
     Dates: start: 20141204, end: 20141209
  2. AMOXICILLIN. [Suspect]
     Active Substance: AMOXICILLIN
     Indication: PHARYNGITIS
     Route: 048
     Dates: start: 20141204, end: 20141212

REACTIONS (9)
  - Pulmonary congestion [None]
  - Peripheral swelling [None]
  - Tubulointerstitial nephritis [None]
  - Cardiomegaly [None]
  - Atelectasis [None]
  - Acute kidney injury [None]
  - Tricuspid valve incompetence [None]
  - Pulmonary fibrosis [None]
  - Pleural effusion [None]

NARRATIVE: CASE EVENT DATE: 20141212
